FAERS Safety Report 23106290 (Version 12)
Quarter: 2024Q3

REPORT INFORMATION
  Report Type: Report from Study
  Country: CN (occurrence: CN)
  Receive Date: 20231025
  Receipt Date: 20240905
  Transmission Date: 20241017
  Serious: Yes (Hospitalization)
  Sender: VERITY PHARMACEUTICALS
  Company Number: CN-VER-202300001

PATIENT
  Age: 72 Year
  Sex: Male
  Weight: 51 kg

DRUGS (29)
  1. TRIPTORELIN [Suspect]
     Active Substance: TRIPTORELIN
     Indication: Prostate cancer
     Dosage: POWDER AND SOLVENT FOR SUSPENSION FOR INJECTION
     Route: 030
     Dates: start: 20230704
  2. RUTIN [Concomitant]
     Active Substance: RUTIN
     Indication: Hypertension
     Dosage: 1 TABLET (1 D)
     Route: 048
     Dates: start: 2022, end: 2023
  3. RUTIN [Concomitant]
     Active Substance: RUTIN
     Indication: Hypertension
     Dosage: 1 TABLET (1 D)
     Route: 048
     Dates: start: 202307, end: 202309
  4. RESERPINE [Concomitant]
     Active Substance: RESERPINE
     Indication: Hypertension
     Dosage: 1 TABLET (12 HR)
     Route: 048
     Dates: start: 2022, end: 2023
  5. RESERPINE [Concomitant]
     Active Substance: RESERPINE
     Indication: Hypertension
     Dosage: 1 TABLET (12 HR)
     Route: 048
     Dates: start: 202307, end: 202309
  6. NIFEDIPINE [Concomitant]
     Active Substance: NIFEDIPINE
     Indication: Hypertension
     Dosage: MODIFIED-RELEASE TABLET 1 TABLET DAILY
     Route: 048
     Dates: start: 202309, end: 202401
  7. NIFEDIPINE [Concomitant]
     Active Substance: NIFEDIPINE
     Indication: Hypertension
     Dosage: CONTROLLED-RELEASE TABLETS, 1 TABLET, DAILY
     Route: 065
     Dates: start: 20240124, end: 20240124
  8. METHYLCOBALAMIN [Concomitant]
     Active Substance: METHYLCOBALAMIN
     Indication: Product used for unknown indication
     Dosage: (0.5 MILLIGRAM(S))
     Route: 048
     Dates: start: 20240114, end: 20240116
  9. VITAMIN B6 [Concomitant]
     Active Substance: PYRIDOXINE HYDROCHLORIDE
     Indication: Product used for unknown indication
     Dosage: (0.1 GRAM(S), IN 1 DAY)
     Route: 042
     Dates: start: 20240114
  10. VITAMIN C [Concomitant]
     Active Substance: ASCORBIC ACID
     Indication: Product used for unknown indication
     Dosage: (0.5 GRAM(S), IN 1 DAY)
     Route: 042
     Dates: start: 20240114
  11. SODIUM CHLORIDE [Concomitant]
     Active Substance: SODIUM CHLORIDE
     Indication: Product used for unknown indication
     Dosage: INJECTION (100 MILLILITRE(S), IN 12 HOUR)
     Route: 042
     Dates: start: 20240114
  12. SODIUM CHLORIDE [Concomitant]
     Active Substance: SODIUM CHLORIDE
     Indication: Product used for unknown indication
     Dosage: (500 MILLILITRE(S), IN 1 DAY), INJECTION
     Route: 042
     Dates: start: 20240114
  13. SODIUM CHLORIDE [Concomitant]
     Active Substance: SODIUM CHLORIDE
     Indication: Product used for unknown indication
     Dosage: INJECTION 250 ML, QD,
     Route: 042
     Dates: start: 20240116
  14. SODIUM CHLORIDE [Concomitant]
     Active Substance: SODIUM CHLORIDE
     Indication: Product used for unknown indication
     Dosage: INJECTION
     Route: 041
     Dates: start: 20240130, end: 20240130
  15. SODIUM CHLORIDE [Concomitant]
     Active Substance: SODIUM CHLORIDE
     Indication: Product used for unknown indication
     Dosage: INJECTION, FREQUENCY: ST
     Route: 041
     Dates: start: 20240130, end: 20240130
  16. CEFMETAZOLE SODIUM [Concomitant]
     Active Substance: CEFMETAZOLE SODIUM
     Indication: Product used for unknown indication
     Dosage: 1 GM TWICE DAILY
     Route: 042
     Dates: start: 20240114
  17. HYDROGEN CLOPIDOGREL [Concomitant]
     Indication: Anticoagulant therapy
     Route: 048
     Dates: start: 20240130
  18. ALLISARTAN ISOPROXIL [Concomitant]
     Active Substance: ALLISARTAN ISOPROXIL
     Indication: Hypertension
     Route: 048
     Dates: start: 20240130
  19. REPATHA [Concomitant]
     Active Substance: EVOLOCUMAB
     Indication: Lipids decreased
     Dosage: 140 MILLIGRAM(S), IN 2 WEEK
     Route: 058
     Dates: start: 20240130
  20. NICORANDIL [Concomitant]
     Active Substance: NICORANDIL
     Indication: Coronary artery disease
     Dosage: 5 MILLIGRAM(S), IN 3 DAY
     Route: 048
     Dates: start: 20240130
  21. SIBUTRAMINE HYDROCHLORIDE [Concomitant]
     Active Substance: SIBUTRAMINE HYDROCHLORIDE
     Indication: Lipids decreased
     Dosage: QN
     Route: 048
     Dates: start: 20240130
  22. LANSOPRAZOLE [Concomitant]
     Active Substance: LANSOPRAZOLE
     Indication: Gastric ulcer
     Route: 048
     Dates: start: 20240130
  23. DEXTROSE [Concomitant]
     Active Substance: DEXTROSE\DEXTROSE MONOHYDRATE
     Indication: Infusion
     Dosage: 5 % PERCENT, INJECTION, ST
     Route: 041
     Dates: start: 20240125, end: 20240202
  24. ADENOSINE CYCLIC PHOSPHATE MEGLUMINE [Concomitant]
     Active Substance: ADENOSINE CYCLIC PHOSPHATE MEGLUMINE
     Indication: Coronary artery disease
     Dosage: I.N, ST
     Route: 048
     Dates: start: 20240125, end: 20240202
  25. ROSUVASTATIN CALCIUM [Concomitant]
     Active Substance: ROSUVASTATIN CALCIUM
     Indication: Lipids decreased
     Dosage: QN
     Route: 048
     Dates: start: 20240124
  26. CARDURA [Concomitant]
     Active Substance: DOXAZOSIN MESYLATE
     Indication: Nocturia
     Dosage: QN
     Route: 048
     Dates: start: 20240124
  27. WARFARIN [Concomitant]
     Active Substance: WARFARIN
     Indication: Anticoagulant therapy
     Route: 048
     Dates: start: 20240124
  28. SOLIFENACIN SUCCINATE [Concomitant]
     Active Substance: SOLIFENACIN SUCCINATE
     Indication: Nocturia
     Route: 048
     Dates: start: 20240624
  29. MIRABEGRON [Concomitant]
     Active Substance: MIRABEGRON
     Indication: Nocturia
     Dosage: QN
     Route: 048
     Dates: start: 20240624

REACTIONS (3)
  - Arterial stenosis [Recovered/Resolved]
  - Cerebral infarction [Recovered/Resolved]
  - Dizziness [Recovered/Resolved]

NARRATIVE: CASE EVENT DATE: 20230918
